FAERS Safety Report 6931213-2 (Version None)
Quarter: 2010Q3

REPORT INFORMATION
  Report Type: 
  Country: None (occurrence: None)
  Receive Date: 20100818
  Receipt Date: 20100812
  Transmission Date: 20110219
  Serious: Yes (Other)
  Sender: FDA-Public Use
  Company Number: US-AMGEN-QUU430169

PATIENT
  Sex: Male

DRUGS (13)
  1. NPLATE [Suspect]
     Indication: IDIOPATHIC THROMBOCYTOPENIC PURPURA
     Dates: start: 20100201
  2. COREG [Concomitant]
  3. JANUVIA [Concomitant]
  4. ZOCOR [Concomitant]
  5. NEXIUM [Concomitant]
  6. VITAMIN D [Concomitant]
  7. LOVAZA [Concomitant]
  8. MAGNESIUM [Concomitant]
  9. ZOFRAN [Concomitant]
  10. LOMOTIL [Concomitant]
  11. GLIMEPIRIDE [Concomitant]
  12. IBUPROFEN [Concomitant]
  13. UNSPECIFIED MEDICATION [Concomitant]

REACTIONS (2)
  - DEEP VEIN THROMBOSIS [None]
  - PAIN [None]
